FAERS Safety Report 11064294 (Version 1)
Quarter: 2015Q2

REPORT INFORMATION
  Report Type: Spontaneous
  Country: JP (occurrence: US)
  Receive Date: 20150424
  Receipt Date: 20150424
  Transmission Date: 20150821
  Serious: Yes (Death)
  Sender: FDA-Public Use
  Company Number: JP-MALLINCKRODT-T201502211

PATIENT
  Age: 65 Year
  Sex: Male
  Weight: 55 kg

DRUGS (10)
  1. FENTOS [Concomitant]
     Active Substance: FENTANYL
     Indication: CANCER PAIN
     Route: 062
  2. OXYNORM [Concomitant]
     Active Substance: OXYCODONE HYDROCHLORIDE
     Dosage: 60 MG, PRN
     Route: 048
     Dates: start: 20140301
  3. METHADONE [Suspect]
     Active Substance: METHADONE HYDROCHLORIDE
     Dosage: 20 MG (60 MG DAILY DOSE)
     Route: 048
     Dates: start: 20140306
  4. OXYCONTIN [Concomitant]
     Active Substance: OXYCODONE HYDROCHLORIDE
     Indication: CANCER PAIN
     Dosage: 60 UNK, UNK
     Route: 065
  5. PARIET [Concomitant]
     Active Substance: RABEPRAZOLE SODIUM
     Dosage: 10 MG
     Route: 048
  6. URIEF [Concomitant]
     Active Substance: SILODOSIN
     Dosage: 8 MG
     Route: 048
  7. UBRETID [Concomitant]
     Active Substance: DISTIGMINE BROMIDE
     Dosage: 5 MG
     Route: 048
  8. AMOXAN [Concomitant]
     Active Substance: AMOXAPINE
     Dosage: 20 MG
     Route: 048
     Dates: start: 20140303
  9. METHADONE [Suspect]
     Active Substance: METHADONE HYDROCHLORIDE
     Indication: CANCER PAIN
     Dosage: 15 MG (45 MG DAILY DOSE)
     Route: 048
     Dates: start: 20140227, end: 20140305
  10. CELECOX [Concomitant]
     Active Substance: CELECOXIB
     Indication: ANALGESIC THERAPY
     Dosage: 200 MG
     Route: 048

REACTIONS (1)
  - Rectal cancer [Fatal]
